FAERS Safety Report 22585337 (Version 1)
Quarter: 2023Q2

REPORT INFORMATION
  Report Type: Spontaneous
  Country: GB (occurrence: GB)
  Receive Date: 20230610
  Receipt Date: 20230610
  Transmission Date: 20230721
  Serious: Yes (Other)
  Sender: FDA-Public Use
  Company Number: None

PATIENT
  Age: 78 Year
  Sex: Female
  Weight: 59 kg

DRUGS (6)
  1. EDOXABAN [Suspect]
     Active Substance: EDOXABAN
     Indication: Ill-defined disorder
     Dosage: UNK
     Route: 065
     Dates: start: 20230605
  2. AMLODIPINE [Concomitant]
     Active Substance: AMLODIPINE BESYLATE
     Indication: Ill-defined disorder
     Dosage: 1 DF, QD (ONE TO BE TAKEN IN THE MORNING)
     Route: 065
     Dates: start: 20201223
  3. ATENOLOL [Concomitant]
     Active Substance: ATENOLOL
     Indication: Ill-defined disorder
     Dosage: 1 DF, QD (ONE TO BE TAKEN EVERY MORNING)
     Route: 065
     Dates: start: 20201223
  4. DIGOXIN [Concomitant]
     Active Substance: DIGOXIN
     Indication: Ill-defined disorder
     Dosage: 1 DF, QD (TAKE ONE EACH MORNING)
     Route: 065
     Dates: start: 20201223
  5. EDOXABAN [Concomitant]
     Active Substance: EDOXABAN
     Indication: Ill-defined disorder
     Dosage: 1 DF, QD (ONE TABLET TO BE TAKEN DAILY)
     Route: 065
     Dates: start: 20230424
  6. WARFARIN SODIUM [Concomitant]
     Active Substance: WARFARIN SODIUM
     Indication: Ill-defined disorder
     Dosage: UNK (USE AS DIRECTED)
     Route: 065
     Dates: start: 20200910, end: 20230424

REACTIONS (1)
  - Migraine [Unknown]

NARRATIVE: CASE EVENT DATE: 20230605
